FAERS Safety Report 23756997 (Version 4)
Quarter: 2024Q3

REPORT INFORMATION
  Report Type: Spontaneous
  Country: US (occurrence: US)
  Receive Date: 20240418
  Receipt Date: 20240815
  Transmission Date: 20241017
  Serious: No
  Sender: PFIZER
  Company Number: US-PFIZER INC-202400081396

PATIENT
  Age: 8 Year
  Sex: Male
  Weight: 40.82 kg

DRUGS (3)
  1. GENOTROPIN [Suspect]
     Active Substance: SOMATROPIN
     Indication: Hormone replacement therapy
     Dosage: 1 ML, 6/7 DAYS PER WEEK
     Dates: start: 202301
  2. GENOTROPIN [Suspect]
     Active Substance: SOMATROPIN
     Indication: Brain neoplasm
     Dosage: 1 ML, 6 NIGHTS A WEEK
  3. GENOTROPIN [Suspect]
     Active Substance: SOMATROPIN
     Indication: Pituitary tumour

REACTIONS (3)
  - Wrong technique in device usage process [Unknown]
  - Device breakage [Unknown]
  - Drug dose omission by device [Unknown]
